FAERS Safety Report 21389038 (Version 3)
Quarter: 2024Q1

REPORT INFORMATION
  Report Type: Other
  Country: IT (occurrence: None)
  Receive Date: 20220929
  Receipt Date: 20240305
  Transmission Date: 20240409
  Serious: No
  Sender: FDA-Public Use
  Company Number: IT-ROCHE-3187180

PATIENT
  Age: 39 Year
  Sex: Female
  Weight: 50 kg

DRUGS (11)
  1. OCRELIZUMAB [Suspect]
     Active Substance: OCRELIZUMAB
     Indication: Relapsing-remitting multiple sclerosis
     Dosage: Q6M
     Route: 042
     Dates: start: 20190625, end: 20190709
  2. OCRELIZUMAB [Suspect]
     Active Substance: OCRELIZUMAB
     Route: 042
     Dates: start: 20210716, end: 20210716
  3. OCRELIZUMAB [Suspect]
     Active Substance: OCRELIZUMAB
     Route: 042
     Dates: start: 20220909, end: 20220909
  4. OCRELIZUMAB [Suspect]
     Active Substance: OCRELIZUMAB
     Route: 042
     Dates: start: 20220223, end: 20220223
  5. OCRELIZUMAB [Suspect]
     Active Substance: OCRELIZUMAB
     Route: 042
     Dates: start: 20200713, end: 20200713
  6. OCRELIZUMAB [Suspect]
     Active Substance: OCRELIZUMAB
     Route: 042
     Dates: start: 20200110, end: 20200110
  7. OCRELIZUMAB [Suspect]
     Active Substance: OCRELIZUMAB
     Route: 042
     Dates: start: 20210112, end: 20210112
  8. OCRELIZUMAB [Suspect]
     Active Substance: OCRELIZUMAB
     Route: 042
     Dates: start: 20230531, end: 20230531
  9. OCRELIZUMAB [Suspect]
     Active Substance: OCRELIZUMAB
     Route: 042
     Dates: start: 20240115, end: 20240115
  10. BISOPROLOL [Concomitant]
     Active Substance: BISOPROLOL\BISOPROLOL FUMARATE
     Route: 048
  11. LIORESAL [Concomitant]
     Active Substance: BACLOFEN
     Route: 048
     Dates: start: 20210401, end: 20230524

REACTIONS (1)
  - COVID-19 [Recovered/Resolved]

NARRATIVE: CASE EVENT DATE: 20220608
